FAERS Safety Report 6720045-6 (Version None)
Quarter: 2010Q2

REPORT INFORMATION
  Report Type: 
  Country: None (occurrence: None)
  Receive Date: 20100511
  Receipt Date: 20100504
  Transmission Date: 20101027
  Serious: Yes (Hospitalization)
  Sender: FDA-Public Use
  Company Number: US-JNJCH-2010011077

PATIENT
  Age: 2 Year
  Sex: Male

DRUGS (1)
  1. CHILDREN'S ZYRTEC ALLERGY [Suspect]
     Indication: HYPERSENSITIVITY
     Dosage: TEXT:UNKNOWN
     Route: 048

REACTIONS (3)
  - DIARRHOEA [None]
  - PRODUCT QUALITY ISSUE [None]
  - VOMITING [None]
